FAERS Safety Report 17684071 (Version 1)
Quarter: 2020Q2

REPORT INFORMATION
  Report Type: Spontaneous
  Country: RU (occurrence: RU)
  Receive Date: 20200420
  Receipt Date: 20200420
  Transmission Date: 20200714
  Serious: Yes (Hospitalization)
  Sender: FDA-Public Use
  Company Number: RU-BAYER-2020-061821

PATIENT
  Age: 68 Year
  Sex: Female
  Weight: 90 kg

DRUGS (1)
  1. ULTRAVIST [Suspect]
     Active Substance: IOPROMIDE
     Indication: COMPUTERISED TOMOGRAM ABDOMEN
     Dosage: 100 ML, ONCE
     Route: 042
     Dates: start: 20200316, end: 20200316

REACTIONS (6)
  - Dyspnoea [None]
  - Erythema [None]
  - Blood pressure decreased [None]
  - Swelling [None]
  - Anxiety [None]
  - Asphyxia [None]

NARRATIVE: CASE EVENT DATE: 20200316
